FAERS Safety Report 17502518 (Version 2)
Quarter: 2020Q1

REPORT INFORMATION
  Report Type: Spontaneous
  Country: DE (occurrence: DE)
  Receive Date: 20200305
  Receipt Date: 20200320
  Transmission Date: 20200409
  Serious: Yes (Other)
  Sender: FDA-Public Use
  Company Number: DE-PFIZER INC-2020095254

PATIENT
  Age: 25 Year
  Sex: Female
  Weight: 70 kg

DRUGS (2)
  1. CYTOTEC [Suspect]
     Active Substance: MISOPROSTOL
     Indication: LABOUR INDUCTION
     Dosage: TOTAL OF 150 MG, DAILY (1-1-1)
     Route: 048
     Dates: start: 20181122, end: 20181122
  2. CYTOTEC [Suspect]
     Active Substance: MISOPROSTOL
     Dosage: 50 MG, 1X/DAY (1-0-0)
     Route: 067
     Dates: start: 201811

REACTIONS (5)
  - Product use in unapproved indication [Unknown]
  - Incorrect route of product administration [Unknown]
  - Vulvovaginal injury [Recovering/Resolving]
  - Uterine tachysystole [Recovering/Resolving]
  - Off label use [Unknown]

NARRATIVE: CASE EVENT DATE: 201811
